FAERS Safety Report 6328035-2 (Version None)
Quarter: 2009Q3

REPORT INFORMATION
  Report Type: 
  Country: None (occurrence: None)
  Receive Date: 20090825
  Receipt Date: 20080827
  Transmission Date: 20100115
  Serious: No
  Sender: FDA-Public Use
  Company Number: US-ABBOTT-08P-163-0473122-00

PATIENT
  Sex: Female
  Weight: 51.302 kg

DRUGS (9)
  1. SYNTHROID [Suspect]
     Indication: HYPOTHYROIDISM
     Route: 048
     Dates: start: 19660101
  2. METOPROLOL [Concomitant]
     Indication: BLOOD PRESSURE
     Route: 048
  3. DIOVAN HCT [Concomitant]
     Indication: BLOOD PRESSURE
     Route: 048
  4. LISINOPRIL [Concomitant]
     Indication: BLOOD PRESSURE
     Route: 048
  5. DIGOXIN [Concomitant]
     Indication: HEART RATE IRREGULAR
     Route: 048
  6. ASPIRIN [Concomitant]
     Indication: ANTICOAGULANT THERAPY
     Route: 048
  7. FUROSEMIDE [Concomitant]
     Indication: BLOOD PRESSURE
     Route: 048
  8. GLIBENCLAMIDE [Concomitant]
     Indication: BLOOD GLUCOSE ABNORMAL
     Route: 048
  9. METFORMIN HCL [Concomitant]
     Indication: BLOOD GLUCOSE ABNORMAL
     Route: 048

REACTIONS (2)
  - BLOOD GLUCOSE INCREASED [None]
  - GLYCOSYLATED HAEMOGLOBIN INCREASED [None]
